FAERS Safety Report 20216453 (Version 1)
Quarter: 2021Q4

REPORT INFORMATION
  Report Type: Spontaneous
  Country: US (occurrence: None)
  Receive Date: 20211221
  Receipt Date: 20211221
  Transmission Date: 20220303
  Serious: Yes (Death)
  Sender: FDA-Public Use
  Company Number: None

PATIENT

DRUGS (16)
  1. CAPECITABINE [Suspect]
     Active Substance: CAPECITABINE
     Indication: Pancreatic carcinoma
     Dosage: OTHER FREQUENCY : BIDX14D,7D OFF;?
     Route: 048
     Dates: start: 20211204
  2. ADVIL [Concomitant]
     Active Substance: IBUPROFEN
  3. VITAMIN C [Concomitant]
     Active Substance: ASCORBIC ACID
  4. CLOTRIMAZOLE [Concomitant]
     Active Substance: CLOTRIMAZOLE
  5. CREON [Concomitant]
     Active Substance: PANCRELIPASE AMYLASE\PANCRELIPASE LIPASE\PANCRELIPASE PROTEASE
  6. DEXAMETHASONE [Concomitant]
     Active Substance: DEXAMETHASONE
  7. DOCUSATE [Concomitant]
     Active Substance: DOCUSATE
  8. FAMOTIDINE [Concomitant]
     Active Substance: FAMOTIDINE
  9. FERROUS GLUCONATE [Suspect]
     Active Substance: FERROUS GLUCONATE
  10. hydrocodone-aspap [Concomitant]
  11. HYDROMORPHONE [Concomitant]
     Active Substance: HYDROMORPHONE
  12. MORPHINE SULFATE [Concomitant]
     Active Substance: MORPHINE SULFATE
  13. ONDANSETRON [Suspect]
     Active Substance: ONDANSETRON
  14. OXALIPLATIN [Concomitant]
     Active Substance: OXALIPLATIN
  15. PROCHLORPERAZINE [Concomitant]
     Active Substance: PROCHLORPERAZINE
  16. XULTOPHY 100/3.6 [Concomitant]
     Active Substance: INSULIN DEGLUDEC\LIRAGLUTIDE

REACTIONS (1)
  - Death [None]
